FAERS Safety Report 14498022 (Version 1)
Quarter: 2018Q1

REPORT INFORMATION
  Report Type: Spontaneous
  Country: US (occurrence: US)
  Receive Date: 20180206
  Receipt Date: 20180206
  Transmission Date: 20180509
  Serious: Yes (Hospitalization)
  Sender: FDA-Public Use
  Company Number: None

PATIENT
  Sex: Male

DRUGS (7)
  1. TESTOTERONE, CELEXA [Concomitant]
  2. ALLOPURINOL, TAMSULOSIN [Concomitant]
  3. CITALOPRAM, LEVOTHYROXIN [Concomitant]
  4. PROCRIT, METOPROL [Concomitant]
  5. PROBIOTIC, LEVOFLOXACIN [Concomitant]
  6. MUCUS RELIEF, REPAGLINIDE [Concomitant]
  7. JADENU [Suspect]
     Active Substance: DEFERASIROX
     Indication: HAEMOCHROMATOSIS
     Route: 048
     Dates: start: 20171024

REACTIONS (3)
  - Therapy cessation [None]
  - Influenza [None]
  - Weight decreased [None]
